FAERS Safety Report 14559077 (Version 1)
Quarter: 2018Q1

REPORT INFORMATION
  Report Type: Spontaneous
  Country: US (occurrence: US)
  Receive Date: 20180221
  Receipt Date: 20180221
  Transmission Date: 20180509
  Serious: Yes (Hospitalization)
  Sender: FDA-Public Use
  Company Number: US-SAGENT PHARMACEUTICALS-2017SAG001163

PATIENT
  Age: 52 Year
  Sex: Male
  Weight: 113.4 kg

DRUGS (16)
  1. HYDROMORPHONE [Concomitant]
     Active Substance: HYDROMORPHONE
  2. LIDOCAINE. [Concomitant]
     Active Substance: LIDOCAINE
  3. SUCCINYLCHOLINE [Concomitant]
     Active Substance: SUCCINYLCHOLINE
  4. KETOROLAC [Concomitant]
     Active Substance: KETOROLAC\KETOROLAC TROMETHAMINE
  5. CEFAZOLIN [Concomitant]
     Active Substance: CEFAZOLIN
  6. GLYCOPYRROLATE. [Concomitant]
     Active Substance: GLYCOPYRROLATE
  7. SEVOFLURANE. [Concomitant]
     Active Substance: SEVOFLURANE
  8. DEXAMETHASONE. [Concomitant]
     Active Substance: DEXAMETHASONE
  9. FENTANYL. [Concomitant]
     Active Substance: FENTANYL
  10. MIDAZOLAM [Concomitant]
     Active Substance: MIDAZOLAM HYDROCHLORIDE
  11. EPHEDRINE. [Concomitant]
     Active Substance: EPHEDRINE
  12. METOCLOPRAMIDE. [Concomitant]
     Active Substance: METOCLOPRAMIDE
  13. FAMOTIDINE. [Concomitant]
     Active Substance: FAMOTIDINE
  14. PROPOFOL. [Suspect]
     Active Substance: PROPOFOL
     Route: 042
     Dates: start: 20170526, end: 20170526
  15. OFIRMEV [Concomitant]
     Active Substance: ACETAMINOPHEN
  16. ROPIVACAINE [Concomitant]
     Active Substance: ROPIVACAINE

REACTIONS (1)
  - Pancreatitis [Recovering/Resolving]

NARRATIVE: CASE EVENT DATE: 20170526
